FAERS Safety Report 24611282 (Version 1)
Quarter: 2024Q4

REPORT INFORMATION
  Report Type: Spontaneous
  Country: US (occurrence: US)
  Receive Date: 20241113
  Receipt Date: 20241113
  Transmission Date: 20250115
  Serious: Yes (Other)
  Sender: JOHNSON AND JOHNSON
  Company Number: US-JNJFOC-20241114316

PATIENT
  Age: 18 Year
  Sex: Female

DRUGS (2)
  1. INVEGA [Suspect]
     Active Substance: PALIPERIDONE
     Indication: Schizophrenia
     Route: 048
  2. UZEDY [Concomitant]
     Active Substance: RISPERIDONE

REACTIONS (2)
  - Hypersomnia [Unknown]
  - Sedation [Unknown]
